FAERS Safety Report 9406973 (Version 2)
Quarter: 2013Q3

REPORT INFORMATION
  Report Type: Spontaneous
  Country: US (occurrence: US)
  Receive Date: 20130718
  Receipt Date: 20130906
  Transmission Date: 20140515
  Serious: No
  Sender: FDA-Public Use
  Company Number: US-PFIZER INC-2013208813

PATIENT
  Age: 34 Year
  Sex: Male
  Weight: 88.44 kg

DRUGS (5)
  1. LYRICA [Suspect]
     Indication: FIBROMYALGIA
     Dosage: 75 MG, 2X/DAY
     Dates: start: 2013, end: 2013
  2. LYRICA [Suspect]
     Dosage: UNK
  3. ZOLOFT [Suspect]
     Dosage: UNK
  4. WELLBUTRIN [Suspect]
     Indication: DEPRESSION
     Dosage: 100 MG, 2X/DAY
  5. WELLBUTRIN [Suspect]
     Indication: ANXIETY
     Dosage: UNK

REACTIONS (4)
  - Sexual dysfunction [Recovered/Resolved]
  - Headache [Recovered/Resolved]
  - Dizziness [Recovered/Resolved]
  - Feeling abnormal [Recovered/Resolved]
